FAERS Safety Report 4445509-X (Version None)
Quarter: 2004Q3

REPORT INFORMATION
  Report Type: 
  Country: None (occurrence: None)
  Receive Date: 20040809
  Receipt Date: 20040331
  Transmission Date: 20050211
  Serious: Yes (Death, Life-Threatening, Hospitalization)
  Sender: FDA-Public Use
  Company Number: USA040157982

PATIENT
  Age: 90 Year
  Sex: Female
  Weight: 50 kg

DRUGS (2)
  1. EVISTA [Suspect]
     Dosage: UNK
     Route: 065
  2. ARICEPT [Concomitant]

REACTIONS (1)
  - PULMONARY EMBOLISM [None]
